FAERS Safety Report 15705623 (Version 1)
Quarter: 2018Q4

REPORT INFORMATION
  Report Type: Spontaneous
  Country: US (occurrence: US)
  Receive Date: 20181210
  Receipt Date: 20181210
  Transmission Date: 20190205
  Serious: Yes (Hospitalization, Disabling)
  Sender: FDA-Public Use
  Company Number: US-JNJFOC-20181207552

PATIENT
  Age: 63 Year
  Sex: Female

DRUGS (1)
  1. INVOKANA [Suspect]
     Active Substance: CANAGLIFLOZIN
     Indication: PRODUCT USED FOR UNKNOWN INDICATION
     Route: 048
     Dates: start: 20151207, end: 20170421

REACTIONS (9)
  - Skin ulcer [Unknown]
  - Acute kidney injury [Recovered/Resolved]
  - Staphylococcal infection [Unknown]
  - Diabetic gangrene [Unknown]
  - Wound [Unknown]
  - Diabetic foot infection [Unknown]
  - Osteomyelitis acute [Unknown]
  - Cellulitis [Unknown]
  - Limb amputation [Unknown]

NARRATIVE: CASE EVENT DATE: 201609
